FAERS Safety Report 15117759 (Version 4)
Quarter: 2018Q4

REPORT INFORMATION
  Report Type: Spontaneous
  Country: IT (occurrence: IT)
  Receive Date: 20180707
  Receipt Date: 20181031
  Transmission Date: 20190204
  Serious: Yes (Hospitalization, Other)
  Sender: FDA-Public Use
  Company Number: IT-AUROBINDO-AUR-APL-2018-033657

PATIENT
  Sex: Male

DRUGS (2)
  1. PARACETAMOL [Suspect]
     Active Substance: ACETAMINOPHEN
     Indication: PRODUCT USED FOR UNKNOWN INDICATION
     Dosage: 2 GRAM, ONCE A DAY IN FIRST DAY
     Route: 065
  2. PARACETAMOL [Suspect]
     Active Substance: ACETAMINOPHEN
     Dosage: 3 GR FOR THE NEXT 2 DAYS
     Route: 065

REACTIONS (2)
  - Myoglobinuria [Recovered/Resolved]
  - Rhabdomyolysis [Recovered/Resolved]
